FAERS Safety Report 4971447-X (Version None)
Quarter: 2006Q2

REPORT INFORMATION
  Report Type: 
  Country: None (occurrence: None)
  Receive Date: 20060411
  Receipt Date: 20060411
  Transmission Date: 20061013
  Serious: Yes (Death, Life-Threatening, Hospitalization, Other)
  Sender: FDA-Public Use
  Company Number: None

PATIENT
  Sex: Female
  Weight: 56.6996 kg

DRUGS (1)
  1. CYTOTEC  SEARL [Suspect]
     Indication: LABOUR INDUCTION
     Dosage: 50MG  X2    5 HOURS APART VAG
     Route: 067
     Dates: start: 20060306, end: 20060306

REACTIONS (7)
  - ABNORMAL LABOUR [None]
  - CAESAREAN SECTION [None]
  - DRUG EXPOSURE DURING PREGNANCY [None]
  - INFERTILITY FEMALE [None]
  - STILLBIRTH [None]
  - UTERINE CONTRACTIONS ABNORMAL [None]
  - UTERINE PERFORATION [None]
